FAERS Safety Report 8288024-8 (Version None)
Quarter: 2012Q2

REPORT INFORMATION
  Report Type: 
  Country: None (occurrence: None)
  Receive Date: 20120416
  Receipt Date: 20120404
  Transmission Date: 20120825
  Serious: Yes (Hospitalization)
  Sender: FDA-Public Use
  Company Number: DE-GLAXOSMITHKLINE-B0785405A

PATIENT
  Sex: Female
  Weight: 86 kg

DRUGS (6)
  1. PANTOPRAZOLE [Concomitant]
  2. NEUPOGEN [Concomitant]
     Dates: start: 20120228, end: 20120303
  3. PACLITAXEL [Suspect]
     Indication: BREAST CANCER
     Dosage: 151MG WEEKLY
     Route: 042
     Dates: start: 20120227
  4. LAPATINIB [Suspect]
     Indication: BREAST CANCER
     Dosage: 750MG PER DAY
     Route: 048
     Dates: start: 20120227
  5. TRASTUZUMAB [Suspect]
     Indication: BREAST CANCER
     Dosage: 688MG EVERY 3 WEEKS
     Route: 042
     Dates: start: 20120227
  6. DOXORUBICIN HCL [Suspect]
     Indication: BREAST CANCER
     Dosage: 38MG WEEKLY
     Route: 042
     Dates: start: 20120227

REACTIONS (1)
  - THROMBOPHLEBITIS [None]
